FAERS Safety Report 5957601-9 (Version None)
Quarter: 2008Q4

REPORT INFORMATION
  Report Type: 
  Country: None (occurrence: None)
  Receive Date: 20081117
  Receipt Date: 20081117
  Transmission Date: 20090506
  Serious: No
  Sender: FDA-Public Use
  Company Number: None

PATIENT
  Age: 55 Year
  Sex: Female
  Weight: 61.2356 kg

DRUGS (1)
  1. ACTONEL [Suspect]
     Indication: OSTEOPENIA
     Dosage: 1 TIME
     Dates: start: 20081028, end: 20081028

REACTIONS (11)
  - ABDOMINAL PAIN UPPER [None]
  - ACTIVITIES OF DAILY LIVING IMPAIRED [None]
  - ARTHRALGIA [None]
  - ASTHENIA [None]
  - CHILLS [None]
  - EXERCISE TOLERANCE DECREASED [None]
  - HEADACHE [None]
  - MALAISE [None]
  - PAIN [None]
  - SOMNOLENCE [None]
  - VOMITING [None]
